FAERS Safety Report 10350685 (Version 1)
Quarter: 2014Q3

REPORT INFORMATION
  Report Type: Spontaneous
  Country: US (occurrence: US)
  Receive Date: 20140730
  Receipt Date: 20140730
  Transmission Date: 20150326
  Serious: No
  Sender: FDA-Public Use
  Company Number: US-009507513-1407USA013314

PATIENT
  Age: 33 Year
  Sex: Male

DRUGS (1)
  1. COPPERTONE WATERBABIES PURE AND SIMPLE SPF 50 [Suspect]
     Active Substance: OCTINOXATE\OCTISALATE\ZINC OXIDE
     Indication: PROPHYLAXIS AGAINST SOLAR RADIATION
     Dosage: UNK, Q2H
     Route: 061
     Dates: start: 201407

REACTIONS (6)
  - Blister [Recovered/Resolved]
  - Circumstance or information capable of leading to medication error [Unknown]
  - Sunburn [Recovered/Resolved]
  - Product quality issue [Unknown]
  - Product expiration date issue [Unknown]
  - Product lot number issue [Unknown]

NARRATIVE: CASE EVENT DATE: 201407
